FAERS Safety Report 14500129 (Version 1)
Quarter: 2018Q1

REPORT INFORMATION
  Report Type: Not Available
  Country: US (occurrence: US)
  Receive Date: 20180207
  Receipt Date: 20180207
  Transmission Date: 20180509
  Serious: No
  Sender: FDA-Public Use
  Company Number: US-FOUNDATIONCONSUMERHC-2017-US-014581

PATIENT
  Age: 31 Year
  Sex: Female
  Weight: 128.37 kg

DRUGS (1)
  1. AFTERA [Suspect]
     Active Substance: LEVONORGESTREL
     Dosage: 1 TABLET PO X 1
     Route: 048
     Dates: start: 20171117, end: 20171117

REACTIONS (4)
  - Vaginal haemorrhage [Recovered/Resolved]
  - Breast tenderness [Unknown]
  - Menstruation delayed [Unknown]
  - Acne [Recovered/Resolved]

NARRATIVE: CASE EVENT DATE: 20171124
